FAERS Safety Report 7889905-7 (Version None)
Quarter: 2011Q4

REPORT INFORMATION
  Report Type: 
  Country: None (occurrence: None)
  Receive Date: 20111103
  Receipt Date: 20111021
  Transmission Date: 20120403
  Serious: Yes (Other)
  Sender: FDA-Public Use
  Company Number: US-ELI_LILLY_AND_COMPANY-US201109004407

PATIENT
  Sex: Female

DRUGS (10)
  1. PROVIGIL [Concomitant]
     Dosage: 200 MG, UNK
  2. LORTAB [Concomitant]
     Dosage: 7.5 MG, TID
  3. DURAGESIC-100 [Concomitant]
     Dosage: 50 UG, EVERY 48 HOURS
  4. HUMATROPE [Suspect]
     Indication: PITUITARY TUMOUR
     Dosage: 0.7 MG, QD
  5. SYNTHROID [Concomitant]
     Dosage: UNK, UNKNOWN
     Route: 065
  6. PREDNISONE [Concomitant]
     Dosage: 7.5 MG, UNK
  7. LEVOXYL [Concomitant]
     Dosage: 1.25 MG, QD
  8. RITALIN [Concomitant]
     Dosage: 20 MG, UNK
  9. DITROPAN [Concomitant]
     Dosage: UNK, UNKNOWN
  10. NEXIUM [Concomitant]
     Dosage: UNK, UNKNOWN

REACTIONS (16)
  - ORAL SURGERY [None]
  - FALL [None]
  - SLEEP DISORDER [None]
  - PAIN [None]
  - SOMNOLENCE [None]
  - WEIGHT DECREASED [None]
  - SLEEP APNOEA SYNDROME [None]
  - HORMONE LEVEL ABNORMAL [None]
  - APNOEA [None]
  - ASTHENIA [None]
  - INSOMNIA [None]
  - PAIN IN EXTREMITY [None]
  - MALAISE [None]
  - CONFUSIONAL STATE [None]
  - INTERVERTEBRAL DISC PROTRUSION [None]
  - DRUG DOSE OMISSION [None]
